FAERS Safety Report 6386441-4 (Version None)
Quarter: 2009Q4

REPORT INFORMATION
  Report Type: 
  Country: None (occurrence: None)
  Receive Date: 20091002
  Receipt Date: 20090501
  Transmission Date: 20100525
  Serious: No
  Sender: FDA-Public Use
  Company Number: US-ASTRAZENECA-2009UW11246

PATIENT
  Age: 65 Year
  Sex: Female
  Weight: 81.6 kg

DRUGS (2)
  1. ARIMIDEX [Suspect]
     Route: 048
     Dates: start: 20050501
  2. ZOLOFT [Concomitant]

REACTIONS (1)
  - HAIR DISORDER [None]
